FAERS Safety Report 9969483 (Version 1)
Quarter: 2014Q1

REPORT INFORMATION
  Report Type: Spontaneous
  Country: US (occurrence: None)
  Receive Date: 20140304
  Receipt Date: 20140304
  Transmission Date: 20141002
  Serious: Yes (Hospitalization)
  Sender: FDA-Public Use
  Company Number: None

PATIENT
  Age: 82 Year
  Sex: Male

DRUGS (3)
  1. CLOPIDOGREL [Suspect]
     Indication: CEREBROVASCULAR ACCIDENT
     Route: 048
     Dates: start: 20131226, end: 20140123
  2. CLOPIDOGREL [Suspect]
     Indication: PROPHYLAXIS
     Route: 048
     Dates: start: 20131226, end: 20140123
  3. DICLOFENAC [Suspect]
     Indication: PAIN
     Route: 048
     Dates: start: 20110107, end: 20140123

REACTIONS (2)
  - Rectal haemorrhage [None]
  - Diarrhoea [None]
